FAERS Safety Report 4488198-0 (Version None)
Quarter: 2004Q4

REPORT INFORMATION
  Report Type: 
  Country: None (occurrence: None)
  Receive Date: 20041026
  Receipt Date: 20041012
  Transmission Date: 20050328
  Serious: Yes (Hospitalization, Other)
  Sender: FDA-Public Use
  Company Number: USA041080908

PATIENT
  Age: 45 Year
  Sex: Male
  Weight: 93 kg

DRUGS (1)
  1. HUMALOG [Suspect]
     Dates: end: 20041001

REACTIONS (3)
  - BLOOD GLUCOSE DECREASED [None]
  - HAEMODIALYSIS [None]
  - OEDEMA PERIPHERAL [None]
